FAERS Safety Report 11852359 (Version 1)
Quarter: 2015Q4

REPORT INFORMATION
  Report Type: Spontaneous
  Country: US (occurrence: US)
  Receive Date: 20151218
  Receipt Date: 20151218
  Transmission Date: 20160305
  Serious: No
  Sender: FDA-Public Use
  Company Number: US-CELGENEUS-USA-2015116654

PATIENT
  Sex: Male

DRUGS (1)
  1. OTEZLA [Suspect]
     Active Substance: APREMILAST
     Indication: LYMPHADENECTOMY
     Dosage: 60 MILLIGRAM
     Route: 048

REACTIONS (3)
  - Arthritis [Unknown]
  - Diarrhoea [Unknown]
  - Drug dose omission [Unknown]
